FAERS Safety Report 17007650 (Version 1)
Quarter: 2019Q4

REPORT INFORMATION
  Report Type: Spontaneous
  Country: GB (occurrence: GB)
  Receive Date: 20191108
  Receipt Date: 20191108
  Transmission Date: 20200122
  Serious: Yes (Other)
  Sender: FDA-Public Use
  Company Number: GB-TEVA-2019-GB-1134450

PATIENT
  Age: 70 Year
  Sex: Female
  Weight: 59 kg

DRUGS (6)
  1. OMEPRAZOLE. [Suspect]
     Active Substance: OMEPRAZOLE
     Dosage: 40MG/ DAY/ 28 DAYS
     Route: 065
     Dates: start: 20190808, end: 20190905
  2. LACTULOSE. [Concomitant]
     Active Substance: LACTULOSE
     Dosage: 30ML/ DAY
     Dates: start: 20161007
  3. BETAHISTINE [Concomitant]
     Active Substance: BETAHISTINE
     Dosage: TAKE ONE OR TWO THREE TIMES A DAY
     Dates: start: 20161007
  4. SUMATRIPTAN. [Concomitant]
     Active Substance: SUMATRIPTAN
     Indication: MIGRAINE
     Dosage: TAKE ONE AS SOON AS MIGRAINE, REPEAT AFTER 2 HOURS
     Dates: start: 20161007
  5. AMITRIPTYLINE HYDROCHLORIDE. [Concomitant]
     Active Substance: AMITRIPTYLINE HYDROCHLORIDE
     Dosage: TO BE TAKEN AT NIGHT, 0.5ML/ DAY
     Dates: start: 20181127
  6. PANTOPRAZOLE [Concomitant]
     Active Substance: PANTOPRAZOLE
     Dosage: 2 DF/ DAY
     Dates: start: 20191014

REACTIONS (1)
  - Oral mucosal blistering [Recovered/Resolved]
